FAERS Safety Report 20883215 (Version 2)
Quarter: 2022Q2

REPORT INFORMATION
  Report Type: Spontaneous
  Country: JP (occurrence: JP)
  Receive Date: 20220527
  Receipt Date: 20220610
  Transmission Date: 20220721
  Serious: Yes (Hospitalization, Other)
  Sender: FDA-Public Use
  Company Number: JP-Teva Takeda Yakuhin-2022-JP-002245J

PATIENT

DRUGS (5)
  1. VOGLIBOSE [Suspect]
     Active Substance: VOGLIBOSE
     Indication: Product used for unknown indication
     Dosage: DOSAGE IS UNKNOWN
     Route: 050
  2. PIOGLITAZONE [Suspect]
     Active Substance: PIOGLITAZONE
     Indication: Product used for unknown indication
     Dosage: DOSAGE IS UNKNOWN
     Route: 048
  3. METFORMIN HYDROCHLORIDE [Concomitant]
     Active Substance: METFORMIN HYDROCHLORIDE
     Dosage: DOSAGE IS UNKNOWN
     Route: 050
  4. JANUVIA [Concomitant]
     Active Substance: SITAGLIPTIN PHOSPHATE
     Dosage: DOSAGE IS UNKNOWN
     Route: 050
  5. UNSPECIFIED INGREDIENT [Concomitant]
     Active Substance: UNSPECIFIED INGREDIENT
     Dosage: DOSAGE IS UNKNOWN
     Route: 050

REACTIONS (3)
  - Diabetes mellitus inadequate control [Unknown]
  - Hospitalisation [Unknown]
  - Decreased appetite [Unknown]
